FAERS Safety Report 8956619 (Version 1)
Quarter: 2012Q4

REPORT INFORMATION
  Report Type: 
  Country: GR (occurrence: GR)
  Receive Date: 20121210
  Receipt Date: 20121210
  Transmission Date: 20130627
  Serious: Yes (Other)
  Sender: FDA-Public Use
  Company Number: GR-AMGEN-GRCSP2012071962

PATIENT
  Age: 76 Year
  Sex: Female

DRUGS (3)
  1. PROLIA [Suspect]
     Indication: OSTEOPOROSIS
     Dosage: 60 mg, q6mo
     Dates: start: 201209
  2. GLUCOPHAGE [Concomitant]
     Dosage: 850 mg, UNK
  3. SOLOSA [Concomitant]
     Dosage: 2 mg, UNK

REACTIONS (1)
  - Pyelonephritis acute [Recovered/Resolved]
